FAERS Safety Report 4981942-5 (Version None)
Quarter: 2006Q2

REPORT INFORMATION
  Report Type: 
  Country: None (occurrence: None)
  Receive Date: 20060425
  Receipt Date: 20050930
  Transmission Date: 20061013
  Serious: Yes (Hospitalization, Other)
  Sender: FDA-Public Use
  Company Number: US-MERCK-0510USA02056

PATIENT
  Age: 49 Year
  Sex: Male
  Weight: 102 kg

DRUGS (9)
  1. VIOXX [Suspect]
     Indication: ARTHRITIS
     Route: 048
     Dates: start: 19991129, end: 20030620
  2. VIOXX [Suspect]
     Route: 048
     Dates: start: 20031202, end: 20040930
  3. VIOXX [Suspect]
     Indication: BACK PAIN
     Route: 048
     Dates: start: 19991129, end: 20030620
  4. VIOXX [Suspect]
     Route: 048
     Dates: start: 20031202, end: 20040930
  5. ASPIRIN [Concomitant]
     Route: 048
  6. ZANTAC [Concomitant]
     Route: 048
  7. DILTIAZEM MALATE [Concomitant]
     Route: 048
  8. LISINOPRIL [Concomitant]
     Route: 048
  9. ZOCOR [Concomitant]
     Route: 048

REACTIONS (25)
  - ANGINA UNSTABLE [None]
  - ATRIAL FIBRILLATION [None]
  - BACK PAIN [None]
  - BENIGN PROSTATIC HYPERPLASIA [None]
  - BRONCHITIS [None]
  - CHEST PAIN [None]
  - CHRONIC OBSTRUCTIVE PULMONARY DISEASE [None]
  - CORONARY ARTERY DISEASE [None]
  - COUGH [None]
  - DIARRHOEA [None]
  - DIASTOLIC DYSFUNCTION [None]
  - DYSLIPIDAEMIA [None]
  - FATIGUE [None]
  - GASTROOESOPHAGEAL REFLUX DISEASE [None]
  - HEADACHE [None]
  - HYPERCHOLESTEROLAEMIA [None]
  - HYPERTENSION [None]
  - INTERVERTEBRAL DISC DEGENERATION [None]
  - LUMBAR RADICULOPATHY [None]
  - MYOCARDIAL INFARCTION [None]
  - MYOFASCIAL PAIN SYNDROME [None]
  - NAUSEA [None]
  - POLYP [None]
  - VENTRICULAR HYPERTROPHY [None]
  - VOMITING [None]
